FAERS Safety Report 8276808-1 (Version None)
Quarter: 2012Q2

REPORT INFORMATION
  Report Type: 
  Country: None (occurrence: None)
  Receive Date: 20120412
  Receipt Date: 20120410
  Transmission Date: 20120825
  Serious: Yes (Other)
  Sender: FDA-Public Use
  Company Number: ES-PFIZER INC-2012088837

PATIENT
  Age: 35 Year
  Sex: Female

DRUGS (1)
  1. VARENICLINE TARTRATE [Suspect]
     Dosage: 1 MG, 2X/DAY
     Route: 048
     Dates: start: 20100913, end: 20101113

REACTIONS (9)
  - PARAESTHESIA [None]
  - GINGIVAL BLEEDING [None]
  - HEADACHE [None]
  - VITAMIN B12 DECREASED [None]
  - NECK PAIN [None]
  - INSOMNIA [None]
  - GASTROINTESTINAL INFLAMMATION [None]
  - BLOOD FOLATE DECREASED [None]
  - MALABSORPTION [None]
